FAERS Safety Report 8814226 (Version 1)
Quarter: 2012Q4

REPORT INFORMATION
  Report Type: Spontaneous
  Country: US (occurrence: None)
  Receive Date: 20120926
  Receipt Date: 20120926
  Transmission Date: 20130627
  Serious: Yes (Hospitalization)
  Sender: FDA-Public Use
  Company Number: None

PATIENT
  Age: 65 Year
  Sex: Female
  Weight: 117.7 kg

DRUGS (2)
  1. WARFARIN [Suspect]
     Indication: DEEP VEIN THROMBOSIS
     Dosage: 5 MG AT BEDTIME PO
     Route: 048
     Dates: start: 20120612, end: 20120618
  2. ENOXAPARIN [Suspect]
     Dosage: 120 MG BID SQ
     Route: 058
     Dates: start: 20120612, end: 20120618

REACTIONS (4)
  - Ecchymosis [None]
  - Haemorrhage [None]
  - Haemarthrosis [None]
  - International normalised ratio increased [None]
